FAERS Safety Report 21565576 (Version 3)
Quarter: 2023Q1

REPORT INFORMATION
  Report Type: Report from Study
  Country: CA (occurrence: CA)
  Receive Date: 20221108
  Receipt Date: 20230221
  Transmission Date: 20230418
  Serious: Yes (Other)
  Sender: FDA-Public Use
  Company Number: CA-ABBVIE-4189081

PATIENT
  Age: 31 Year
  Sex: Female

DRUGS (1)
  1. HUMIRA [Suspect]
     Active Substance: ADALIMUMAB
     Indication: Crohn^s disease
     Route: 058
     Dates: start: 20130925

REACTIONS (9)
  - Fistula [Unknown]
  - Haemorrhage [Unknown]
  - Anal fissure [Unknown]
  - Impaired healing [Unknown]
  - Post procedural complication [Unknown]
  - Periorbital swelling [Unknown]
  - Eye inflammation [Unknown]
  - Immunodeficiency [Unknown]
  - Crying [Unknown]

NARRATIVE: CASE EVENT DATE: 20230104
